FAERS Safety Report 7850338-0 (Version None)
Quarter: 2011Q4

REPORT INFORMATION
  Report Type: 
  Country: None (occurrence: None)
  Receive Date: 20111026
  Receipt Date: 20111019
  Transmission Date: 20120403
  Serious: Yes (Hospitalization)
  Sender: FDA-Public Use
  Company Number: BE-UCBSA-040578

PATIENT
  Sex: Female

DRUGS (3)
  1. CERTOLIZUMAB PEGOL [Suspect]
     Indication: RHEUMATOID ARTHRITIS
     Dosage: DOSE:2 ; UNIT:200 ; NO OF DOSES RECEIVED:4
     Route: 058
     Dates: start: 20110609, end: 20110722
  2. METHOTREXATE [Concomitant]
     Dosage: DOSE PER INTAKE: 2.5, 45 MG PER WEEK
     Route: 048
     Dates: start: 20090101
  3. NEORAL [Concomitant]
     Route: 048
     Dates: start: 20090101

REACTIONS (2)
  - SWELLING FACE [None]
  - INJECTION SITE SWELLING [None]
